FAERS Safety Report 21681417 (Version 1)
Quarter: 2022Q4

REPORT INFORMATION
  Report Type: Spontaneous
  Country: US (occurrence: None)
  Receive Date: 20221202
  Receipt Date: 20221202
  Transmission Date: 20230112
  Serious: Yes (Hospitalization, Other)
  Sender: FDA-Public Use
  Company Number: None

PATIENT
  Age: 70 Year
  Sex: Male
  Weight: 110.3 kg

DRUGS (1)
  1. MOLNUPIRAVIR [Suspect]
     Active Substance: MOLNUPIRAVIR
     Dates: start: 20221201, end: 20221201

REACTIONS (6)
  - Urticaria [None]
  - Pruritus [None]
  - Burning sensation [None]
  - Erythema [None]
  - Chest discomfort [None]
  - Anaphylactic reaction [None]

NARRATIVE: CASE EVENT DATE: 20221201
